APPROVED DRUG PRODUCT: WIXELA INHUB
Active Ingredient: FLUTICASONE PROPIONATE; SALMETEROL XINAFOATE
Strength: 0.1MG/INH;EQ 0.05MG BASE/INH
Dosage Form/Route: POWDER;INHALATION
Application: A208891 | Product #001 | TE Code: AB
Applicant: MYLAN PHARMACEUTICALS INC
Approved: Jan 30, 2019 | RLD: No | RS: No | Type: RX